FAERS Safety Report 5560233-8 (Version None)
Quarter: 2007Q4

REPORT INFORMATION
  Report Type: 
  Country: None (occurrence: None)
  Receive Date: 20071214
  Receipt Date: 20071029
  Transmission Date: 20080405
  Serious: No
  Sender: FDA-Public Use
  Company Number: US-ABBOTT-07P-163-0423136-00

PATIENT
  Sex: Female
  Weight: 74.91 kg

DRUGS (5)
  1. HUMIRA [Suspect]
     Indication: CROHN'S DISEASE
     Route: 058
     Dates: start: 20071026, end: 20071026
  2. HUMIRA [Suspect]
     Route: 058
     Dates: start: 20071027, end: 20071027
  3. HUMIRA [Suspect]
     Route: 058
     Dates: start: 20071028, end: 20071028
  4. HUMIRA [Suspect]
     Route: 058
     Dates: start: 20071029
  5. TOO MANY TO LIST [Concomitant]

REACTIONS (6)
  - ACCIDENTAL EXPOSURE [None]
  - CHILLS [None]
  - DISORIENTATION [None]
  - DIZZINESS [None]
  - INFLUENZA LIKE ILLNESS [None]
  - PAIN [None]
